FAERS Safety Report 6991747-1 (Version None)
Quarter: 2010Q3

REPORT INFORMATION
  Report Type: 
  Country: None (occurrence: None)
  Receive Date: 20100917
  Receipt Date: 20100913
  Transmission Date: 20110219
  Serious: No
  Sender: FDA-Public Use
  Company Number: US-PFIZER INC-2010116213

PATIENT
  Sex: Female
  Weight: 77.098 kg

DRUGS (1)
  1. CLEOCIN [Suspect]
     Indication: PROPHYLAXIS
     Dosage: 600 MG, UNK
     Route: 042
     Dates: start: 20100526, end: 20100526

REACTIONS (2)
  - RASH [None]
  - URTICARIA [None]
